FAERS Safety Report 10079110 (Version 1)
Quarter: 2014Q2

REPORT INFORMATION
  Report Type: Spontaneous
  Country: US (occurrence: US)
  Receive Date: 20140415
  Receipt Date: 20140415
  Transmission Date: 20141212
  Serious: No
  Sender: FDA-Public Use
  Company Number: US-009507513-1404USA002479

PATIENT
  Sex: Male

DRUGS (2)
  1. COPPERTONE WATER BABIES SUNSCREEN STICK SPF-55 [Suspect]
     Indication: PRODUCT USED FOR UNKNOWN INDICATION
     Dosage: UNK UNK, UNKNOWN
     Route: 061
     Dates: start: 2014
  2. COPPERTONE WATERBABIES LOTION SPF 30 [Suspect]
     Indication: PRODUCT USED FOR UNKNOWN INDICATION
     Dosage: UNK UNK, UNKNOWN
     Route: 061
     Dates: start: 2014

REACTIONS (3)
  - Rash generalised [Recovered/Resolved]
  - Feeling hot [Recovering/Resolving]
  - Swelling face [Recovered/Resolved]
